FAERS Safety Report 10716639 (Version 2)
Quarter: 2015Q1

REPORT INFORMATION
  Report Type: Spontaneous
  Country: US (occurrence: US)
  Receive Date: 20150116
  Receipt Date: 20150121
  Transmission Date: 20150721
  Serious: Yes (Death, Other)
  Sender: FDA-Public Use
  Company Number: US-SIGMA-TAU US-2015STPI000010

PATIENT
  Sex: Male

DRUGS (2)
  1. CHEMOTHERAPEUTICS [Suspect]
     Active Substance: UNSPECIFIED INGREDIENT
     Indication: LYMPHOMA
     Dosage: UNK
  2. ADAGEN [Suspect]
     Active Substance: PEGADEMASE BOVINE
     Indication: COMBINED IMMUNODEFICIENCY
     Dosage: 1125 IU, BIW
     Route: 030
     Dates: end: 201406

REACTIONS (2)
  - Infection [Fatal]
  - Lymphoma [Not Recovered/Not Resolved]
